FAERS Safety Report 23440805 (Version 18)
Quarter: 2025Q1

REPORT INFORMATION
  Report Type: Report from Study
  Country: MX (occurrence: MX)
  Receive Date: 20240125
  Receipt Date: 20250212
  Transmission Date: 20250408
  Serious: Yes (Death, Life-Threatening, Hospitalization, Other)
  Sender: TAKEDA
  Company Number: MX-TAKEDA-2022TUS026426

PATIENT
  Sex: Male
  Weight: 29 kg

DRUGS (15)
  1. IDURSULFASE [Suspect]
     Active Substance: IDURSULFASE
     Indication: Mucopolysaccharidosis II
  2. IDURSULFASE [Suspect]
     Active Substance: IDURSULFASE
  3. IDURSULFASE [Suspect]
     Active Substance: IDURSULFASE
     Dosage: 3 DOSAGE FORM, QD
  4. IDURSULFASE [Suspect]
     Active Substance: IDURSULFASE
     Dosage: 3 DOSAGE FORM, 1/WEEK
     Dates: start: 20160520
  5. IDURSULFASE [Suspect]
     Active Substance: IDURSULFASE
     Dosage: 3 DOSAGE FORM, 1/WEEK
     Dates: start: 2016
  6. IDURSULFASE [Suspect]
     Active Substance: IDURSULFASE
  7. IDURSULFASE [Suspect]
     Active Substance: IDURSULFASE
     Dosage: 3 DOSAGE FORM, 1/WEEK
  8. IDURSULFASE [Suspect]
     Active Substance: IDURSULFASE
     Dosage: 3 DOSAGE FORM, 1/WEEK
  9. IDURSULFASE [Suspect]
     Active Substance: IDURSULFASE
     Dosage: 18 MILLIGRAM, 1/WEEK
  10. IDURSULFASE [Suspect]
     Active Substance: IDURSULFASE
     Dosage: UNK UNK, 1/WEEK
  11. IDURSULFASE [Suspect]
     Active Substance: IDURSULFASE
  12. LEVETIRACETAM [Suspect]
     Active Substance: LEVETIRACETAM
     Indication: Seizure
     Dosage: 500 MILLIGRAM, QD
     Dates: start: 2019
  13. LEVETIRACETAM [Suspect]
     Active Substance: LEVETIRACETAM
     Dosage: 250 MILLIGRAM, Q12H
  14. IBUPROFEN [Concomitant]
     Active Substance: IBUPROFEN
  15. VALPROATE MAGNESIUM [Concomitant]
     Active Substance: VALPROATE MAGNESIUM
     Dosage: 100 MILLIGRAM, Q8HR

REACTIONS (40)
  - Death [Fatal]
  - Near death experience [Unknown]
  - Asphyxia [Not Recovered/Not Resolved]
  - Productive cough [Not Recovered/Not Resolved]
  - Obstruction [Not Recovered/Not Resolved]
  - Choking [Unknown]
  - Tooth fracture [Recovering/Resolving]
  - Dental caries [Recovering/Resolving]
  - Seizure [Unknown]
  - Cough [Recovering/Resolving]
  - Varicella [Not Recovered/Not Resolved]
  - Illness [Not Recovered/Not Resolved]
  - Rhinorrhoea [Not Recovered/Not Resolved]
  - Insomnia [Unknown]
  - Defaecation disorder [Recovered/Resolved]
  - Feeding disorder [Unknown]
  - Influenza [Not Recovered/Not Resolved]
  - Toothache [Unknown]
  - Drooling [Unknown]
  - Tooth infection [Unknown]
  - Expired product administered [Unknown]
  - Pallor [Unknown]
  - Product use issue [Unknown]
  - Dyskinesia [Unknown]
  - Dysphagia [Unknown]
  - Discouragement [Unknown]
  - Asthenia [Unknown]
  - Neurological decompensation [Unknown]
  - Injury [Unknown]
  - Pyrexia [Not Recovered/Not Resolved]
  - Circumstance or information capable of leading to medication error [Unknown]
  - Product availability issue [Not Recovered/Not Resolved]
  - Inappropriate schedule of product administration [Not Recovered/Not Resolved]
  - Product use in unapproved indication [Not Recovered/Not Resolved]
  - Product dose omission issue [Not Recovered/Not Resolved]
  - Pain [Not Recovered/Not Resolved]
  - Fall [Not Recovered/Not Resolved]
  - Weight decreased [Not Recovered/Not Resolved]
  - Skin laceration [Not Recovered/Not Resolved]
  - Orbital oedema [Not Recovered/Not Resolved]

NARRATIVE: CASE EVENT DATE: 20190101
